FAERS Safety Report 18177741 (Version 1)
Quarter: 2020Q3

REPORT INFORMATION
  Report Type: Spontaneous
  Country: US (occurrence: US)
  Receive Date: 20200821
  Receipt Date: 20200821
  Transmission Date: 20201103
  Serious: Yes (Life-Threatening, Hospitalization, Other)
  Sender: FDA-Public Use
  Company Number: US-SUN PHARMACEUTICAL INDUSTRIES LTD-2020R1-257828

PATIENT
  Age: 44 Year
  Sex: Female

DRUGS (2)
  1. VERAPAMIL [Suspect]
     Active Substance: VERAPAMIL HYDROCHLORIDE
     Indication: SUICIDE ATTEMPT
     Dosage: 60 TABLET (125 MG)
     Route: 065
  2. CLONAZEPAM. [Suspect]
     Active Substance: CLONAZEPAM
     Indication: SUICIDE ATTEMPT
     Dosage: 90 TABLET (0.25 MG)
     Route: 065

REACTIONS (10)
  - Mental status changes [Unknown]
  - Suicide attempt [Unknown]
  - Hypotension [Recovering/Resolving]
  - Aspartate aminotransferase increased [Unknown]
  - Intentional overdose [Unknown]
  - Toxicity to various agents [Unknown]
  - Dysarthria [Unknown]
  - Acute respiratory distress syndrome [Recovering/Resolving]
  - Electrocardiogram QRS complex prolonged [Unknown]
  - Bradycardia [Recovering/Resolving]
